FAERS Safety Report 9424124 (Version 4)
Quarter: 2013Q3

REPORT INFORMATION
  Report Type: Spontaneous
  Country: US (occurrence: US)
  Receive Date: 20130729
  Receipt Date: 20130919
  Transmission Date: 20140515
  Serious: Yes (Hospitalization)
  Sender: FDA-Public Use
  Company Number: US-009507513-1307USA009722

PATIENT
  Age: 64 Year
  Sex: Male

DRUGS (4)
  1. VICTRELIS [Suspect]
     Indication: CHRONIC HEPATITIS C
     Dosage: UNK
  2. RIBAVIRIN [Suspect]
     Dosage: 1200 MG DAILY, DIVIDED DOSES
     Route: 048
     Dates: start: 20130606
  3. PEGASYS [Suspect]
     Indication: CHRONIC HEPATITIS C
     Dosage: 180 MICROGRAM, QW,PROCLICK AUTOINJECTOR
     Route: 058
     Dates: start: 20130606, end: 20130809
  4. PEGASYS [Suspect]
     Dosage: UNK

REACTIONS (7)
  - Renal disorder [Unknown]
  - Cardiac failure congestive [Unknown]
  - Rash pruritic [Unknown]
  - Myalgia [Unknown]
  - Arthralgia [Unknown]
  - Diarrhoea [Unknown]
  - Nausea [Unknown]
